FAERS Safety Report 17650676 (Version 3)
Quarter: 2020Q2

REPORT INFORMATION
  Report Type: Report from Study
  Country: US (occurrence: US)
  Receive Date: 20200409
  Receipt Date: 20200619
  Transmission Date: 20200713
  Serious: Yes (Other)
  Sender: FDA-Public Use
  Company Number: US-BIOGEN-2020BI00859723

PATIENT
  Sex: Female

DRUGS (2)
  1. AMPYRA [Suspect]
     Active Substance: DALFAMPRIDINE
     Indication: GAIT DISTURBANCE
     Dosage: 10 MILLIGRAM, BID
     Route: 065
     Dates: start: 201908
  2. TYSABRI [Suspect]
     Active Substance: NATALIZUMAB
     Indication: MULTIPLE SCLEROSIS
     Route: 065
     Dates: start: 20190306

REACTIONS (11)
  - Stress [Unknown]
  - Nervousness [Unknown]
  - Multiple sclerosis relapse [Unknown]
  - Neoplasm malignant [Unknown]
  - Dysphemia [Unknown]
  - Crying [Unknown]
  - Pyrexia [Unknown]
  - Frustration tolerance decreased [Unknown]
  - Confusional state [Unknown]
  - Red blood cell count increased [Unknown]
  - Insomnia [Unknown]

NARRATIVE: CASE EVENT DATE: 2019
